FAERS Safety Report 25657906 (Version 1)
Quarter: 2025Q3

REPORT INFORMATION
  Report Type: Spontaneous
  Country: EU (occurrence: EU)
  Receive Date: 20250808
  Receipt Date: 20250808
  Transmission Date: 20251020
  Serious: Yes (Other)
  Sender: SANOFI AVENTIS
  Company Number: None

PATIENT
  Age: 24 Month
  Sex: Male

DRUGS (2)
  1. EFMOROCTOCOG ALFA [Suspect]
     Active Substance: EFMOROCTOCOG ALFA
     Indication: Factor VIII deficiency
  2. EFMOROCTOCOG ALFA [Suspect]
     Active Substance: EFMOROCTOCOG ALFA
     Indication: Factor VIII deficiency

REACTIONS (1)
  - Inhibiting antibodies [Unknown]

NARRATIVE: CASE EVENT DATE: 20240101
